FAERS Safety Report 22853285 (Version 5)
Quarter: 2023Q4

REPORT INFORMATION
  Report Type: Spontaneous
  Country: US (occurrence: US)
  Receive Date: 20230823
  Receipt Date: 20231208
  Transmission Date: 20240110
  Serious: Yes (Other)
  Sender: FDA-Public Use
  Company Number: US-Calliditas-2023CAL01004

PATIENT
  Age: 41 Year
  Sex: Male
  Weight: 78.38 kg

DRUGS (2)
  1. TARPEYO [Suspect]
     Active Substance: BUDESONIDE
     Indication: Haematuria
     Dosage: 16 MG (4 MG CAPSULES) ONCE DAILY
     Route: 048
     Dates: start: 20230720
  2. LISINOPRIL [Concomitant]
     Active Substance: LISINOPRIL

REACTIONS (8)
  - Neuralgia [Unknown]
  - Nausea [Unknown]
  - Headache [Unknown]
  - Disorientation [Unknown]
  - Balance disorder [Unknown]
  - Carpal tunnel syndrome [Recovering/Resolving]
  - Product dose omission issue [Unknown]
  - Tension headache [Unknown]
